FAERS Safety Report 4490101-4 (Version None)
Quarter: 2004Q4

REPORT INFORMATION
  Report Type: 
  Country: None (occurrence: None)
  Receive Date: 20041028
  Receipt Date: 20041021
  Transmission Date: 20050328
  Serious: Yes (Death, Other)
  Sender: FDA-Public Use
  Company Number: 2004UW21991

PATIENT
  Age: 45 Year
  Sex: Male

DRUGS (1)
  1. SEROQUEL [Suspect]

REACTIONS (5)
  - AGITATION [None]
  - DRUG TOXICITY [None]
  - FALL [None]
  - HYPERTENSIVE HEART DISEASE [None]
  - MEDICATION ERROR [None]
